FAERS Safety Report 7688088-6 (Version None)
Quarter: 2011Q3

REPORT INFORMATION
  Report Type: 
  Country: None (occurrence: None)
  Receive Date: 20110817
  Receipt Date: 20110808
  Transmission Date: 20111222
  Serious: Yes (Death)
  Sender: FDA-Public Use
  Company Number: BR-BRISTOL-MYERS SQUIBB COMPANY-15952609

PATIENT
  Age: 18 Year
  Sex: Male

DRUGS (6)
  1. CYCLOPHOSPHAMIDE [Suspect]
     Indication: FIBROSARCOMA
     Dosage: 1 DOSAGE FORM:8G/M2
  2. CISPLATIN [Suspect]
     Indication: FIBROSARCOMA
     Dosage: DOSE:480MG/M
  3. GRANULOCYTE CSF [Concomitant]
  4. MESNA [Suspect]
     Indication: FIBROSARCOMA
     Dosage: 1 DF: 2.7G/M2/DAY
  5. DOXORUBICIN HCL [Suspect]
     Indication: FIBROSARCOMA
     Dosage: DOSE:320MG/M
  6. IFOSFAMIDE [Suspect]
     Indication: FIBROSARCOMA
     Dosage: 1DF:54G/M2

REACTIONS (1)
  - ACUTE MYELOID LEUKAEMIA [None]
